FAERS Safety Report 9029070 (Version 1)
Quarter: 2013Q1

REPORT INFORMATION
  Report Type: Spontaneous
  Country: GR (occurrence: GR)
  Receive Date: 20130122
  Receipt Date: 20130122
  Transmission Date: 20140127
  Serious: Yes (Other)
  Sender: FDA-Public Use
  Company Number: GR-ROCHE-1180446

PATIENT
  Age: 47 Year
  Sex: Female
  Weight: 70 kg

DRUGS (1)
  1. XENICAL [Suspect]
     Indication: OFF LABEL USE
     Route: 065

REACTIONS (2)
  - Loose tooth [Not Recovered/Not Resolved]
  - Abdominal pain [Not Recovered/Not Resolved]
